FAERS Safety Report 7767920-1 (Version None)
Quarter: 2011Q3

REPORT INFORMATION
  Report Type: 
  Country: None (occurrence: None)
  Receive Date: 20110922
  Receipt Date: 20101006
  Transmission Date: 20111222
  Serious: No
  Sender: FDA-Public Use
  Company Number: US-ASTRAZENECA-2010SE47283

PATIENT
  Age: 35 Year
  Sex: Female

DRUGS (6)
  1. LITHIUM CARBONATE [Concomitant]
     Route: 048
     Dates: start: 20100601
  2. SEROQUEL [Suspect]
     Indication: PERSONALITY DISORDER
     Dosage: 150 MG AT 6 PM, THEN 50 MG ADDED AT 10 AM
     Route: 048
     Dates: start: 20100201
  3. SEROQUEL [Suspect]
     Dosage: INCREASED DOSE
     Route: 048
  4. SEROQUEL [Suspect]
     Dosage: INCREASED DOSE
     Route: 048
  5. LAMICTAL [Concomitant]
     Route: 048
     Dates: start: 20100701
  6. SEROQUEL [Suspect]
     Indication: BIPOLAR DISORDER
     Dosage: 150 MG AT 6 PM, THEN 50 MG ADDED AT 10 AM
     Route: 048
     Dates: start: 20100201

REACTIONS (8)
  - SOMNOLENCE [None]
  - CONFUSIONAL STATE [None]
  - GRIP STRENGTH DECREASED [None]
  - NECK PAIN [None]
  - DYSARTHRIA [None]
  - TREMOR [None]
  - STARING [None]
  - PARANOIA [None]
